FAERS Safety Report 8501931 (Version 6)
Quarter: 2012Q4

REPORT INFORMATION
  Report Type: 
  Country: FR (occurrence: FR)
  Receive Date: 20120410
  Receipt Date: 20121025
  Transmission Date: 20130627
  Serious: Yes (Hospitalization)
  Sender: FDA-Public Use
  Company Number: FR-PFIZER INC-2012084635

PATIENT
  Age: 58 Year
  Sex: Female

DRUGS (28)
  1. FARMORUBICINE [Suspect]
     Indication: BREAST CANCER
     Dosage: 170 mg, cyclic (100 mg/m2)
     Route: 042
     Dates: start: 20021203, end: 20021203
  2. FARMORUBICINE [Suspect]
     Dosage: 170 mg, cyclic
     Route: 042
     Dates: start: 20021226, end: 20021226
  3. FARMORUBICINE [Suspect]
     Dosage: 170 mg, cyclic
     Route: 042
     Dates: start: 20030116, end: 20030116
  4. FARMORUBICINE [Suspect]
     Dosage: 170 mg, cyclic
     Route: 042
     Dates: start: 20030206, end: 20030206
  5. FARMORUBICINE [Suspect]
     Dosage: 170 mg, cyclic
     Route: 042
     Dates: start: 20030227, end: 20030227
  6. FARMORUBICINE [Suspect]
     Dosage: 170 mg, cyclic
     Route: 042
     Dates: start: 20030320, end: 20030320
  7. FEMARA [Suspect]
     Indication: BREAST CANCER
     Dosage: 1 DF, 1x/day
     Route: 048
     Dates: start: 200810
  8. ENDOXAN [Concomitant]
     Indication: BREAST CANCER
     Dosage: 860 mg, cyclic (100 mg/m2)
     Dates: start: 20021203, end: 20021203
  9. ENDOXAN [Concomitant]
     Dosage: 860 mg, cyclic
     Dates: start: 20021226, end: 20021226
  10. ENDOXAN [Concomitant]
     Dosage: 860 mg, cyclic
     Dates: start: 20030116, end: 20030116
  11. ENDOXAN [Concomitant]
     Dosage: 860 mg, cyclic
     Dates: start: 20030206, end: 20030206
  12. ENDOXAN [Concomitant]
     Dosage: 860 mg, cyclic
     Dates: start: 20030227, end: 20030227
  13. ENDOXAN [Concomitant]
     Dosage: 860 mg, cyclic
     Dates: start: 20030320, end: 20030320
  14. FLUOROURACIL [Concomitant]
     Indication: BREAST CANCER
     Dosage: 860 mg, cyclic (500 mg/m2)
     Dates: start: 20021203, end: 20021203
  15. FLUOROURACIL [Concomitant]
     Dosage: 860 mg, cyclic
     Dates: start: 20021226, end: 20021226
  16. FLUOROURACIL [Concomitant]
     Dosage: 860 mg, cyclic
     Dates: start: 20030116, end: 20030116
  17. FLUOROURACIL [Concomitant]
     Dosage: 860 mg, cyclic
     Dates: start: 20030206, end: 20030206
  18. FLUOROURACIL [Concomitant]
     Dosage: 860 mg, cyclic
     Dates: start: 20030227, end: 20030227
  19. FLUOROURACIL [Concomitant]
     Dosage: 860 mg, cyclic
     Dates: start: 20030320, end: 20030320
  20. EFFEXOR [Concomitant]
     Dosage: 1 DF, 1x/day
  21. LEVOTHYROX [Concomitant]
     Indication: HYPOTHYROIDISM
     Dosage: 1 DF, 1x/day
  22. STILNOX [Concomitant]
     Dosage: 1 DF, 1x/day
  23. LEXOMIL [Concomitant]
     Dosage: 2DF morning, 1DF midday, 2DF evening
  24. NOCTAMID [Concomitant]
  25. SOLU-MEDROL [Concomitant]
     Dosage: 40 mg, UNK
     Dates: start: 20021203
  26. PRIMPERAN [Concomitant]
     Dosage: 2 vials
     Dates: start: 20021203
  27. ZOPHREN [Concomitant]
     Dosage: 1 vial
     Dates: start: 20021203
  28. TRANXENE [Concomitant]
     Dosage: 20 mg, UNK
     Dates: start: 20021203

REACTIONS (1)
  - Congestive cardiomyopathy [Not Recovered/Not Resolved]
